FAERS Safety Report 9170445 (Version 1)
Quarter: 2013Q1

REPORT INFORMATION
  Report Type: Spontaneous
  Country: US (occurrence: None)
  Receive Date: 20130308
  Receipt Date: 20130308
  Transmission Date: 20140127
  Serious: Yes (Death)
  Sender: FDA-Public Use
  Company Number: UMC201302-000013

PATIENT
  Sex: Male

DRUGS (4)
  1. CLONIDINE HCL [Suspect]
  2. METHYLPHENIDATE ER [Suspect]
  3. BUPROPION SR 150 MYLAN [Suspect]
  4. MELATONIN (MELATONIN) (MELATONIN) [Suspect]

REACTIONS (1)
  - Intentional overdose [None]
